FAERS Safety Report 6771677-0 (Version None)
Quarter: 2010Q2

REPORT INFORMATION
  Report Type: 
  Country: None (occurrence: None)
  Receive Date: 20100616
  Receipt Date: 20100322
  Transmission Date: 20101027
  Serious: No
  Sender: FDA-Public Use
  Company Number: US-ASTRAZENECA-2010SE12914

PATIENT
  Sex: Female

DRUGS (1)
  1. ATACAND HCT [Suspect]
     Route: 048
     Dates: start: 20091201

REACTIONS (2)
  - COUGH [None]
  - RESPIRATORY TRACT INFECTION [None]
